FAERS Safety Report 6142192-2 (Version None)
Quarter: 2009Q2

REPORT INFORMATION
  Report Type: 
  Country: None (occurrence: None)
  Receive Date: 20090402
  Receipt Date: 20090323
  Transmission Date: 20091009
  Serious: Yes (Other)
  Sender: FDA-Public Use
  Company Number: US-BAXTER-2009BH004861

PATIENT
  Age: 17 Year
  Sex: Female

DRUGS (3)
  1. VINORELBINE TARTRATE [Suspect]
     Indication: RHABDOMYOSARCOMA
     Route: 042
  2. OXALIPLATIN [Suspect]
     Indication: RHABDOMYOSARCOMA
     Route: 065
  3. IRINOTECAN HYDROCHLORIDE [Suspect]
     Indication: RHABDOMYOSARCOMA
     Route: 065

REACTIONS (1)
  - DRUG EXPOSURE DURING PREGNANCY [None]
